FAERS Safety Report 11369011 (Version 2)
Quarter: 2015Q4

REPORT INFORMATION
  Report Type: Spontaneous
  Country: US (occurrence: US)
  Receive Date: 20150812
  Receipt Date: 20151012
  Transmission Date: 20160304
  Serious: Yes (Other)
  Sender: FDA-Public Use
  Company Number: PHEH2015US015357

PATIENT
  Sex: Female

DRUGS (4)
  1. EXELON PATCH [Suspect]
     Active Substance: RIVASTIGMINE
     Indication: PRODUCT USED FOR UNKNOWN INDICATION
     Dosage: 4.6 OT, UNK
     Route: 062
  2. NAMENDA [Suspect]
     Active Substance: MEMANTINE HYDROCHLORIDE
     Indication: PRODUCT USED FOR UNKNOWN INDICATION
     Dosage: 10 MG TWICE DAILY
     Route: 065
     Dates: start: 201301
  3. EXELON PATCH [Suspect]
     Active Substance: RIVASTIGMINE
     Dosage: 9.5 OT, UNK
     Route: 062
  4. NAMENDA [Suspect]
     Active Substance: MEMANTINE HYDROCHLORIDE
     Dosage: 28 MG ONCE A DAY (EXTENDED RELEASE)
     Route: 065

REACTIONS (6)
  - Glaucoma [Unknown]
  - Dry eye [Unknown]
  - Slow response to stimuli [Unknown]
  - Hypersomnia [Unknown]
  - Fatigue [Unknown]
  - Cataract [Unknown]
